FAERS Safety Report 10018052 (Version 1)
Quarter: 2014Q1

REPORT INFORMATION
  Report Type: Spontaneous
  Country: US (occurrence: US)
  Receive Date: 20140318
  Receipt Date: 20140318
  Transmission Date: 20141002
  Serious: Yes (Other)
  Sender: FDA-Public Use
  Company Number: US-JNJFOC-20140306524

PATIENT
  Age: 42 Year
  Sex: Male

DRUGS (9)
  1. XARELTO [Suspect]
     Indication: PULMONARY EMBOLISM
     Dosage: 250 MG PER 500 ML OR 1 G
     Route: 048
     Dates: start: 20131005
  2. HEPARIN [Suspect]
     Indication: PULMONARY EMBOLISM
     Route: 065
     Dates: end: 20131004
  3. COUMADIN [Suspect]
     Indication: PULMONARY EMBOLISM
     Route: 065
     Dates: end: 20131004
  4. ISOPURE WHEY PROTEIN [Concomitant]
     Route: 065
  5. ECHINACHEA [Concomitant]
     Route: 065
  6. ADVIL [Concomitant]
     Route: 065
  7. ZYRTEC D [Concomitant]
     Route: 065
  8. NEPRINOL [Concomitant]
     Route: 065
  9. MULTIVITAMINS [Concomitant]
     Route: 065

REACTIONS (2)
  - Rash pruritic [Unknown]
  - Expired drug administered [Unknown]
